FAERS Safety Report 4886795-1 (Version None)
Quarter: 2006Q1

REPORT INFORMATION
  Report Type: 
  Country: None (occurrence: None)
  Receive Date: 20060119
  Receipt Date: 20060110
  Transmission Date: 20060701
  Serious: Yes (Death, Hospitalization)
  Sender: FDA-Public Use
  Company Number: 2005-09-0784

PATIENT
  Age: 25 Year
  Sex: Female

DRUGS (2)
  1. TEMODAL [Suspect]
     Indication: OLIGODENDROGLIOMA
     Dosage: 75-UNKMG/M^2; ORAL
     Route: 048
     Dates: start: 20040622, end: 20050201
  2. RADIATION THERAPY, NO DOSE FORM [Suspect]
     Indication: OLIGODENDROGLIOMA
     Dosage: UNKNOWN X-RAY THERAPY

REACTIONS (5)
  - CENTRAL NERVOUS SYSTEM LYMPHOMA [None]
  - DIFFUSE LARGE B-CELL LYMPHOMA [None]
  - MALIGNANT MEDIASTINAL NEOPLASM [None]
  - METASTASES TO MENINGES [None]
  - SUPERIOR VENA CAVAL OCCLUSION [None]
